FAERS Safety Report 4836450-9 (Version None)
Quarter: 2005Q4

REPORT INFORMATION
  Report Type: 
  Country: None (occurrence: None)
  Receive Date: 20051123
  Receipt Date: 20051110
  Transmission Date: 20060501
  Serious: Yes (Hospitalization)
  Sender: FDA-Public Use
  Company Number: PHBS2005JP16653

PATIENT
  Age: 83 Year
  Sex: Female

DRUGS (3)
  1. NEORAL [Suspect]
     Indication: PEMPHIGOID
     Dosage: 50 MG/D
     Route: 048
     Dates: start: 20050901, end: 20051102
  2. LECTISOL [Suspect]
     Indication: PEMPHIGOID
     Route: 048
     Dates: start: 20050901, end: 20051102
  3. ADRENOCORTICOTROPHIC HORMONE [Concomitant]
     Indication: PEMPHIGOID
     Dosage: 15 MG/D
     Route: 048
     Dates: start: 20050901

REACTIONS (1)
  - HAEMOLYTIC ANAEMIA [None]
